FAERS Safety Report 10420983 (Version 1)
Quarter: 2014Q3

REPORT INFORMATION
  Report Type: Spontaneous
  Country: HR (occurrence: None)
  Receive Date: 20140828
  Receipt Date: 20140828
  Transmission Date: 20150326
  Serious: Yes (Death, Life-Threatening, Hospitalization)
  Sender: FDA-Public Use
  Company Number: FK201403343

PATIENT
  Age: 78 Year
  Sex: Female

DRUGS (5)
  1. DOBUTAMIN (DOBUTAMINE HYDROCHLORIDE) [Concomitant]
  2. AMIODARONE HCL [Suspect]
     Active Substance: AMIODARONE HYDROCHLORIDE
     Indication: ATRIAL FIBRILLATION
     Route: 042
  3. THEOPHYLLINE (THEOPHYLLINE) [Concomitant]
     Active Substance: THEOPHYLLINE
  4. RALOXIFENE (RALOXIFENE) [Concomitant]
  5. NORADRENALIN (NOREPHINEPHRINE) [Concomitant]

REACTIONS (9)
  - Heart rate increased [None]
  - Liver injury [None]
  - Sepsis [None]
  - Hepatic enzyme increased [None]
  - Cardiac failure [None]
  - Large intestine perforation [None]
  - Arterial thrombosis [None]
  - Hypotension [None]
  - General physical health deterioration [None]
